FAERS Safety Report 22254945 (Version 1)
Quarter: 2023Q2

REPORT INFORMATION
  Report Type: Spontaneous
  Country: US (occurrence: US)
  Receive Date: 20230426
  Receipt Date: 20230426
  Transmission Date: 20230722
  Serious: No
  Sender: FDA-Public Use
  Company Number: US-SA-SAC20230425000388

PATIENT
  Age: 4 Year
  Sex: Female

DRUGS (2)
  1. DUPIXENT [Suspect]
     Active Substance: DUPILUMAB
     Indication: Dermatitis allergic
     Dosage: 300 MG, Q4W
     Route: 058
     Dates: start: 20230302
  2. HYDROCORTISONE\NEOMYCIN SULFATE [Concomitant]
     Active Substance: HYDROCORTISONE\NEOMYCIN SULFATE
     Dosage: UNK

REACTIONS (1)
  - Eczema [Recovering/Resolving]
